FAERS Safety Report 15661410 (Version 1)
Quarter: 2018Q4

REPORT INFORMATION
  Report Type: Spontaneous
  Country: UA (occurrence: UA)
  Receive Date: 20181127
  Receipt Date: 20181127
  Transmission Date: 20190205
  Serious: Yes (Hospitalization)
  Sender: FDA-Public Use
  Company Number: UA-ASTRAZENECA-2018SF54620

PATIENT
  Age: 22919 Day
  Sex: Female

DRUGS (2)
  1. BRILINTA [Suspect]
     Active Substance: TICAGRELOR
     Dosage: 90 TWO TIMES A DAY
     Route: 048
     Dates: start: 20181115
  2. ASPIRIN. [Concomitant]
     Active Substance: ASPIRIN
     Dosage: 300 MG
     Route: 065

REACTIONS (4)
  - Post procedural haematoma [Recovered/Resolved]
  - Procedural haemorrhage [Unknown]
  - Artery dissection [Unknown]
  - Haematoma [Recovered/Resolved]

NARRATIVE: CASE EVENT DATE: 20181115
